FAERS Safety Report 5526548-4 (Version None)
Quarter: 2007Q4

REPORT INFORMATION
  Report Type: 
  Country: None (occurrence: None)
  Receive Date: 20071127
  Receipt Date: 20071114
  Transmission Date: 20080405
  Serious: Yes (Death, Hospitalization, Other)
  Sender: FDA-Public Use
  Company Number: NL-ELI_LILLY_AND_COMPANY-NL200709006338

PATIENT
  Sex: Female

DRUGS (9)
  1. FORTEO [Suspect]
     Indication: OSTEOPOROTIC FRACTURE
     Dosage: 20 UG, UNKNOWN
     Route: 058
  2. ACENOCOUMAROL [Concomitant]
  3. COTRIM [Concomitant]
     Dosage: 480 MG, DAILY (1/D)
  4. DEXAMETHASONE [Concomitant]
     Dosage: 0.5 MG, 4/D
  5. DOXYCYCLINE [Concomitant]
     Dosage: 100 MG, 2/D
  6. PCM [Concomitant]
     Dosage: 1000 UG, AS NEEDED UP TO 4/D
  7. TRAMADOL HCL [Concomitant]
     Dosage: 50 MG, UNK
  8. PANTOPRAZOLE SODIUM [Concomitant]
     Dosage: 40 MG, DAILY (1/D)
  9. METOCLOPRAMIDE [Concomitant]
     Dosage: 10 MG, AS NEEDEDUP TOL 3/D

REACTIONS (6)
  - DELIRIUM [None]
  - FALL [None]
  - LEG AMPUTATION [None]
  - PELVIC FRACTURE [None]
  - PNEUMONIA [None]
  - SEPSIS [None]
